FAERS Safety Report 7318987-6 (Version None)
Quarter: 2011Q1

REPORT INFORMATION
  Report Type: 
  Country: None (occurrence: None)
  Receive Date: 20110228
  Receipt Date: 20110217
  Transmission Date: 20110831
  Serious: Yes (Hospitalization)
  Sender: FDA-Public Use
  Company Number: BE-BAXTER-2010BH030644

PATIENT
  Age: 4 Year
  Sex: Male

DRUGS (4)
  1. EXTRANEAL [Suspect]
     Indication: RENAL FAILURE CHRONIC
     Route: 033
     Dates: start: 20100914
  2. PHYSIOSOL IN PLASTIC CONTAINER [Concomitant]
     Indication: PERITONEAL DIALYSIS
     Route: 033
     Dates: start: 20100914
  3. NYSTATIN [Concomitant]
     Indication: PRODUCT USED FOR UNKNOWN INDICATION
     Route: 065
  4. EXTRANEAL [Suspect]
     Indication: PERITONEAL DIALYSIS
     Route: 033
     Dates: start: 20100914

REACTIONS (2)
  - PERITONITIS [None]
  - SYSTEMIC INFLAMMATORY RESPONSE SYNDROME [None]
